FAERS Safety Report 8592118-7 (Version None)
Quarter: 2012Q3

REPORT INFORMATION
  Report Type: 
  Country: None (occurrence: None)
  Receive Date: 20120814
  Receipt Date: 20120809
  Transmission Date: 20120928
  Serious: Yes (Hospitalization)
  Sender: FDA-Public Use
  Company Number: US-VERTEX PHARMACEUTICALS INC.-AE-2011-005369

PATIENT
  Sex: Male
  Weight: 72.64 kg

DRUGS (8)
  1. ADVIL [Concomitant]
  2. ASPIRIN [Concomitant]
  3. ASPIRIN [Concomitant]
  4. INCIVEK [Suspect]
     Indication: HEPATITIS C
     Route: 048
     Dates: start: 20111101
  5. PEGASYS [Concomitant]
     Indication: HEPATITIS C
     Route: 058
     Dates: start: 20111101
  6. RIBAVIRIN [Concomitant]
     Indication: HEPATITIS C
     Route: 048
     Dates: start: 20111101
  7. LYRICA [Concomitant]
  8. GABAPENTIN [Concomitant]

REACTIONS (11)
  - NASAL CONGESTION [None]
  - BACK PAIN [None]
  - RASH GENERALISED [None]
  - ANORECTAL DISCOMFORT [None]
  - HAEMORRHOIDS [None]
  - CHOLELITHIASIS [None]
  - COUGH [None]
  - NAUSEA [None]
  - FATIGUE [None]
  - DIARRHOEA [None]
  - ANAL PRURITUS [None]
